FAERS Safety Report 11267770 (Version 1)
Quarter: 2015Q3

REPORT INFORMATION
  Report Type: Spontaneous
  Country: US (occurrence: US)
  Receive Date: 20150713
  Receipt Date: 20150713
  Transmission Date: 20151125
  Serious: No
  Sender: FDA-Public Use
  Company Number: US-MPIJNJ-2013MPI000854

PATIENT
  Age: 3 Year
  Sex: Male
  Weight: 15.6 kg

DRUGS (4)
  1. IMMUNOSUPPRESSANTS [Concomitant]
     Active Substance: UNSPECIFIED INGREDIENT
     Indication: GRAFT VERSUS HOST DISEASE
  2. METHYLPREDNISOLONE. [Concomitant]
     Active Substance: METHYLPREDNISOLONE
     Indication: GRAFT VERSUS HOST DISEASE
     Dosage: 0.75 MG/KG, BID
     Route: 042
  3. VELCADE [Suspect]
     Active Substance: BORTEZOMIB
     Indication: GRAFT VERSUS HOST DISEASE
     Dosage: 1.3 MG/M2, ON DAYS 1, 4, 8 NAD 11 EVERY 21 DAYS
     Route: 042
     Dates: start: 20131102
  4. ZOFRAN [Concomitant]
     Active Substance: ONDANSETRON HYDROCHLORIDE
     Dosage: UNK
     Route: 042

REACTIONS (3)
  - Medication error [Not Recovered/Not Resolved]
  - Product use issue [Unknown]
  - No adverse event [Not Recovered/Not Resolved]

NARRATIVE: CASE EVENT DATE: 20131102
